FAERS Safety Report 8119271-3 (Version None)
Quarter: 2012Q1

REPORT INFORMATION
  Report Type: 
  Country: None (occurrence: None)
  Receive Date: 20120207
  Receipt Date: 20120125
  Transmission Date: 20120608
  Serious: Yes (Hospitalization)
  Sender: FDA-Public Use
  Company Number: US-ELI_LILLY_AND_COMPANY-US201201008523

PATIENT
  Sex: Female

DRUGS (5)
  1. AMITIZA [Concomitant]
  2. LORAZEPAM [Concomitant]
  3. ZYPREXA [Suspect]
     Indication: BIPOLAR I DISORDER
     Dosage: 2.5 MG, QD
  4. MIRALAX [Concomitant]
  5. ZYPREXA [Suspect]
     Dosage: 5 MG, QD

REACTIONS (4)
  - OFF LABEL USE [None]
  - DEPRESSION [None]
  - INSOMNIA [None]
  - INTENTIONAL DRUG MISUSE [None]
